FAERS Safety Report 18941399 (Version 1)
Quarter: 2021Q1

REPORT INFORMATION
  Report Type: Spontaneous
  Country: FR (occurrence: FR)
  Receive Date: 20210225
  Receipt Date: 20210225
  Transmission Date: 20210420
  Serious: Yes (Life-Threatening, Hospitalization, Other)
  Sender: FDA-Public Use
  Company Number: FR-AVION PHARMACEUTICALS, LLC-2107333

PATIENT
  Age: 48 Year
  Sex: Male

DRUGS (5)
  1. IBUPROFEN. [Suspect]
     Active Substance: IBUPROFEN
     Route: 065
  2. PARACETAMOL [Suspect]
     Active Substance: ACETAMINOPHEN
     Route: 065
  3. KETOPROFEN. [Suspect]
     Active Substance: KETOPROFEN
     Route: 065
  4. GLOPERBA [Suspect]
     Active Substance: COLCHICINE
     Indication: POLYARTHRITIS
     Route: 048
  5. ALLOPURINOL. [Concomitant]
     Active Substance: ALLOPURINOL
     Route: 065

REACTIONS (11)
  - Vomiting [Unknown]
  - Anaemia [Unknown]
  - Respiratory failure [Unknown]
  - Diarrhoea [Unknown]
  - Metabolic acidosis [Unknown]
  - Alopecia [Unknown]
  - Thrombocytopenia [Unknown]
  - Renal failure [Unknown]
  - Acute hepatic failure [Unknown]
  - Leukopenia [Unknown]
  - Hepatic function abnormal [Unknown]
